FAERS Safety Report 7420885-4 (Version None)
Quarter: 2011Q2

REPORT INFORMATION
  Report Type: 
  Country: None (occurrence: None)
  Receive Date: 20110418
  Receipt Date: 20110411
  Transmission Date: 20111010
  Serious: Yes (Other)
  Sender: FDA-Public Use
  Company Number: A0903721A

PATIENT
  Age: 71 Year
  Sex: Male

DRUGS (4)
  1. AVODART [Suspect]
     Indication: BENIGN PROSTATIC HYPERPLASIA
     Dosage: .5MG PER DAY
     Route: 048
     Dates: start: 20100901, end: 20110101
  2. MULTI-VITAMIN [Concomitant]
  3. SIMVASTATIN [Concomitant]
  4. FLOMAX [Concomitant]

REACTIONS (5)
  - RECTAL HAEMORRHAGE [None]
  - FEAR [None]
  - DRUG INEFFECTIVE [None]
  - CONSTIPATION [None]
  - PRODUCT QUALITY ISSUE [None]
